FAERS Safety Report 5152900-5 (Version None)
Quarter: 2006Q4

REPORT INFORMATION
  Report Type: 
  Country: None (occurrence: None)
  Receive Date: 20061117
  Receipt Date: 20061107
  Transmission Date: 20070319
  Serious: Yes (Other)
  Sender: FDA-Public Use
  Company Number: US-JNJFOC-20061102851

PATIENT
  Sex: Female
  Weight: 63.5 kg

DRUGS (7)
  1. DURAGESIC-100 [Suspect]
     Indication: PAIN
     Route: 062
  2. POTASSIUM ACETATE [Concomitant]
     Indication: VITAMIN SUPPLEMENTATION
     Route: 048
  3. NORVASC [Concomitant]
     Indication: BLOOD PRESSURE
     Route: 048
  4. ADVAIR DISKUS 100/50 [Concomitant]
     Indication: ASTHMA
     Route: 055
  5. FLEXERIL [Concomitant]
     Indication: MUSCLE RELAXANT THERAPY
     Route: 048
  6. HYDROCODONE [Concomitant]
     Indication: BREAKTHROUGH PAIN
     Route: 048
  7. LACTULOSE [Concomitant]
     Indication: LAXATIVE SUPPORTIVE CARE
     Route: 048

REACTIONS (6)
  - BACK PAIN [None]
  - CONSTIPATION [None]
  - CONVULSION [None]
  - DYSPHONIA [None]
  - DYSPNOEA [None]
  - PHARMACEUTICAL PRODUCT COMPLAINT [None]
